FAERS Safety Report 25138220 (Version 2)
Quarter: 2025Q2

REPORT INFORMATION
  Report Type: Spontaneous
  Country: US (occurrence: US)
  Receive Date: 20250330
  Receipt Date: 20250421
  Transmission Date: 20250717
  Serious: Yes (Death, Other)
  Sender: GLENMARK
  Company Number: US-MLMSERVICE-20250313-PI439718-00077-13

PATIENT
  Age: 66 Year
  Sex: Male

DRUGS (6)
  1. TACROLIMUS [Suspect]
     Active Substance: TACROLIMUS
     Indication: Immunosuppressant drug therapy
     Dosage: 2.5 MILLIGRAM, QD
     Route: 048
  2. CAPECITABINE [Suspect]
     Active Substance: CAPECITABINE
     Indication: Actinic keratosis
     Dosage: 1 GRAM PER SQUARE METRE, QD
     Route: 048
  3. CAPECITABINE [Suspect]
     Active Substance: CAPECITABINE
     Indication: Squamous cell carcinoma of skin
     Dosage: 1500 MILLIGRAM, QD
     Route: 048
     Dates: start: 20181227, end: 20190224
  4. PREDNISONE [Suspect]
     Active Substance: PREDNISONE
     Indication: Immunosuppressant drug therapy
     Dosage: 5 MILLIGRAM, QD
     Route: 048
  5. MYCOPHENOLATE MOFETIL [Suspect]
     Active Substance: MYCOPHENOLATE MOFETIL
     Indication: Immunosuppressant drug therapy
     Dosage: 1000 MILLIGRAM, BID (EVERY 12 HOURS)
     Route: 048
  6. MYCOPHENOLATE MOFETIL [Suspect]
     Active Substance: MYCOPHENOLATE MOFETIL
     Dosage: 250 MILLIGRAM, BID (EVERY 12 HOURS)
     Route: 048

REACTIONS (4)
  - Metastatic squamous cell carcinoma [Fatal]
  - Squamous cell carcinoma of skin [Unknown]
  - Paradoxical drug reaction [Unknown]
  - Condition aggravated [Unknown]
